FAERS Safety Report 7203076-1 (Version None)
Quarter: 2010Q4

REPORT INFORMATION
  Report Type: 
  Country: None (occurrence: None)
  Receive Date: 20101229
  Receipt Date: 20101221
  Transmission Date: 20110411
  Serious: Yes (Other)
  Sender: FDA-Public Use
  Company Number: GB-ABBOTT-10P-167-0687551-00

PATIENT
  Age: 46 Year
  Sex: Female

DRUGS (4)
  1. PROSTAP 3N [Suspect]
     Indication: ENDOMETRIOSIS
     Route: 030
     Dates: start: 20100929
  2. PROSTAP SR [Suspect]
     Indication: ENDOMETRIOSIS
     Dosage: 3.75 MG
     Route: 030
     Dates: start: 20100729
  3. PROSTAP SR [Suspect]
     Dosage: 3.75 MG
     Dates: start: 20100831
  4. TIBOLONE [Suspect]
     Indication: PRODUCT USED FOR UNKNOWN INDICATION
     Route: 048
     Dates: start: 20100723

REACTIONS (7)
  - ANXIETY [None]
  - ENDOMETRIOSIS [None]
  - FATIGUE [None]
  - HYPERHIDROSIS [None]
  - MALAISE [None]
  - MYALGIA [None]
  - TEARFULNESS [None]
